FAERS Safety Report 15451641 (Version 2)
Quarter: 2018Q4

REPORT INFORMATION
  Report Type: Report from Study
  Country: US (occurrence: US)
  Receive Date: 20181001
  Receipt Date: 20181109
  Transmission Date: 20190204
  Serious: Yes (Hospitalization)
  Sender: FDA-Public Use
  Company Number: US-HORIZON-PEN-1035-2018

PATIENT
  Age: 64 Year
  Sex: Male

DRUGS (7)
  1. VITAMIN D [Concomitant]
     Active Substance: CHOLECALCIFEROL
  2. OMEGA 3 [Concomitant]
     Active Substance: OMEGA-3 FATTY ACIDS
  3. PENNSAID [Suspect]
     Active Substance: DICLOFENAC SODIUM
     Indication: BURSITIS
     Dosage: 1 SAMPLE PER DAY
     Dates: start: 20180921
  4. XARELTO [Concomitant]
     Active Substance: RIVAROXABAN
  5. REVLIMID [Concomitant]
     Active Substance: LENALIDOMIDE
  6. K2 [Concomitant]
     Active Substance: JWH-018
  7. CURCUMIN [Concomitant]
     Active Substance: CURCUMIN

REACTIONS (4)
  - Expired product administered [Recovered/Resolved]
  - Application site pain [Recovered/Resolved]
  - Application site swelling [Recovered/Resolved]
  - Off label use [Recovered/Resolved]

NARRATIVE: CASE EVENT DATE: 20180921
